FAERS Safety Report 10538655 (Version 3)
Quarter: 2015Q2

REPORT INFORMATION
  Report Type: Not Available
  Country: DE (occurrence: DE)
  Receive Date: 20141023
  Receipt Date: 20150519
  Transmission Date: 20150821
  Serious: Yes (Death, Other)
  Sender: FDA-Public Use
  Company Number: DE-CELGENE-062-50794-14050387

PATIENT

DRUGS (3)
  1. VIDAZA [Suspect]
     Active Substance: AZACITIDINE
     Indication: ACUTE MYELOID LEUKAEMIA
  2. VIDAZA [Suspect]
     Active Substance: AZACITIDINE
     Indication: MYELODYSPLASTIC SYNDROME
     Route: 065
  3. VIDAZA [Suspect]
     Active Substance: AZACITIDINE
     Indication: CHRONIC MYELOMONOCYTIC LEUKAEMIA

REACTIONS (19)
  - Infection [Fatal]
  - Acute lymphocytic leukaemia [Fatal]
  - Pneumonia [Unknown]
  - Ill-defined disorder [Unknown]
  - Disease progression [Fatal]
  - Neutropenia [Unknown]
  - Cardiac failure [Fatal]
  - Hepatic cirrhosis [Fatal]
  - Anaemia [Unknown]
  - Haemorrhage [Fatal]
  - Administration site reaction [Unknown]
  - Death [Fatal]
  - Acute myeloid leukaemia [Fatal]
  - Multi-organ failure [Fatal]
  - Renal failure [Fatal]
  - Thrombocytopenia [Unknown]
  - Febrile neutropenia [Unknown]
  - Adverse event [Unknown]
  - No therapeutic response [Unknown]
